FAERS Safety Report 20085397 (Version 1)
Quarter: 2021Q4

REPORT INFORMATION
  Report Type: Report from Study
  Country: GT (occurrence: GT)
  Receive Date: 20211118
  Receipt Date: 20211118
  Transmission Date: 20220303
  Serious: Yes (Death)
  Sender: FDA-Public Use
  Company Number: GT-BAYER-2021A251575

PATIENT
  Age: 43 Year
  Sex: Female

DRUGS (1)
  1. BETAFERON [Suspect]
     Active Substance: INTERFERON BETA-1B
     Indication: Multiple sclerosis
     Dosage: 1.0 ML, QOD
     Dates: start: 20190315, end: 20211010

REACTIONS (3)
  - Death [Fatal]
  - Pyrexia [None]
  - Decreased appetite [None]

NARRATIVE: CASE EVENT DATE: 20210908
